FAERS Safety Report 4594852-2 (Version None)
Quarter: 2005Q1

REPORT INFORMATION
  Report Type: 
  Country: None (occurrence: None)
  Receive Date: 20050223
  Receipt Date: 20050202
  Transmission Date: 20050727
  Serious: Yes (Hospitalization)
  Sender: FDA-Public Use
  Company Number: 2004105698

PATIENT
  Age: 74 Year
  Sex: Male

DRUGS (2)
  1. CELEBREX [Suspect]
     Indication: NEOPLASM PROPHYLAXIS
     Dosage: (1 D), ORAL
     Route: 048
     Dates: start: 20010601, end: 20040701
  2. GLUCOSAMINE (GLUCOSAMINE) [Concomitant]

REACTIONS (7)
  - ACUTE MYOCARDIAL INFARCTION [None]
  - COLON ADENOMA [None]
  - CORONARY ARTERY DISEASE [None]
  - ELECTROCARDIOGRAM ST SEGMENT ABNORMAL [None]
  - HYPERTENSION [None]
  - VENTRICULAR DYSFUNCTION [None]
  - VENTRICULAR HYPOKINESIA [None]
